FAERS Safety Report 5483546-7 (Version None)
Quarter: 2007Q4

REPORT INFORMATION
  Report Type: 
  Country: None (occurrence: None)
  Receive Date: 20071012
  Receipt Date: 20071002
  Transmission Date: 20080405
  Serious: Yes (Hospitalization)
  Sender: FDA-Public Use
  Company Number: CH-WYE-G00418707

PATIENT
  Age: 35 Year
  Sex: Male

DRUGS (18)
  1. EFFEXOR [Suspect]
     Indication: DEPRESSION
     Dosage: 75 MG PER DAY
     Route: 048
     Dates: start: 20070807, end: 20070813
  2. EFFEXOR [Interacting]
     Dosage: 150 MG PER DAY
     Route: 048
     Dates: start: 20070814, end: 20070825
  3. EFFEXOR [Interacting]
     Dosage: 75 MG PER DAY
     Route: 048
     Dates: start: 20070826
  4. VALIUM [Interacting]
     Dosage: 30 MG PER DAY
     Route: 048
     Dates: start: 20070731, end: 20070801
  5. VALIUM [Interacting]
     Dosage: DOSE GRADUALLY REDUCED
     Route: 048
     Dates: start: 20070801, end: 20070910
  6. VALIUM [Interacting]
     Dosage: 10 MG PER DAY
     Route: 048
     Dates: start: 20070911
  7. SEROQUEL [Concomitant]
     Dosage: 100 MG PER DAY
     Route: 048
     Dates: start: 20070726, end: 20070729
  8. SEROQUEL [Concomitant]
     Dosage: 450 MG PER DAY
     Route: 048
     Dates: start: 20070730, end: 20070730
  9. SEROQUEL [Concomitant]
     Dosage: 600 MG PER DAY
     Route: 048
     Dates: start: 20070731, end: 20070802
  10. SEROQUEL [Concomitant]
     Dosage: 800 MG PER DAY
     Route: 048
     Dates: start: 20070803, end: 20070806
  11. SEROQUEL [Concomitant]
     Dosage: 1000 MG PER DAY
     Route: 048
     Dates: start: 20070807
  12. TEMESTA [Concomitant]
     Dosage: 4 MG PER DAY
     Route: 048
     Dates: start: 20070726, end: 20070730
  13. FLUOXETINE [Concomitant]
     Indication: DEPRESSION
     Dosage: 60 MG PER DAY
     Route: 048
     Dates: start: 20070726, end: 20070806
  14. FLUOXETINE [Concomitant]
     Dosage: 40 MG PER DAY
     Route: 048
     Dates: start: 20070807, end: 20070809
  15. FLUOXETINE [Concomitant]
     Dosage: 20 MG PER DAY
     Route: 048
     Dates: start: 20070810, end: 20070813
  16. HALDOL [Interacting]
     Dosage: 10 MG PER DAY
     Route: 048
     Dates: start: 20070808, end: 20070809
  17. HALDOL [Interacting]
     Dosage: 20 MG PER DAY
     Route: 048
     Dates: start: 20070810, end: 20070812
  18. HALDOL [Interacting]
     Dosage: 10 MG PER DAY
     Route: 048
     Dates: start: 20070813

REACTIONS (6)
  - ALANINE AMINOTRANSFERASE INCREASED [None]
  - ANTIDEPRESSANT DRUG LEVEL INCREASED [None]
  - CONSTIPATION [None]
  - DRUG INTERACTION [None]
  - GAMMA-GLUTAMYLTRANSFERASE INCREASED [None]
  - MICTURITION DISORDER [None]
